FAERS Safety Report 19084588 (Version 1)
Quarter: 2021Q2

REPORT INFORMATION
  Report Type: Spontaneous
  Country: US (occurrence: US)
  Receive Date: 20210401
  Receipt Date: 20210401
  Transmission Date: 20210717
  Serious: No
  Sender: FDA-Public Use
  Company Number: US-IBSA PHARMA-2018-IBS-00670

PATIENT
  Age: 72 Year
  Weight: 122.47 kg

DRUGS (7)
  1. FLECTOR [Suspect]
     Active Substance: DICLOFENAC EPOLAMINE
     Indication: PAIN
     Dosage: UNK TWICE A DAY (EVERY 12 HOURS)
     Route: 061
     Dates: start: 2018
  2. NORCO [Concomitant]
     Active Substance: ACETAMINOPHEN\HYDROCODONE BITARTRATE
  3. TRAMADOL. [Concomitant]
     Active Substance: TRAMADOL
     Indication: PAIN
     Dosage: TAKING 50MG TWO TABLETS EVERY SIX HOURS
  4. TYLENOL ALL/SINUS [Concomitant]
     Indication: PAIN
  5. HYDROCODONE [Concomitant]
     Active Substance: HYDROCODONE
  6. FLECTOR [Suspect]
     Active Substance: DICLOFENAC EPOLAMINE
     Indication: BACK PAIN
     Dosage: 1/2 PATCHT
     Route: 061
     Dates: start: 20180714, end: 2018
  7. FLECTOR [Suspect]
     Active Substance: DICLOFENAC EPOLAMINE
     Dosage: 1 DF, DAILY
     Route: 061
     Dates: end: 2019

REACTIONS (9)
  - Product use in unapproved indication [Unknown]
  - Hypoacusis [Unknown]
  - Overweight [Unknown]
  - Poor quality device used [Unknown]
  - Device adhesion issue [Unknown]
  - Intentional device misuse [Unknown]
  - Off label use [Unknown]
  - Drug effective for unapproved indication [Unknown]
  - Gait inability [Unknown]

NARRATIVE: CASE EVENT DATE: 2018
